FAERS Safety Report 11096354 (Version 1)
Quarter: 2015Q2

REPORT INFORMATION
  Report Type: Spontaneous
  Country: US (occurrence: US)
  Receive Date: 20150507
  Receipt Date: 20150507
  Transmission Date: 20150821
  Serious: No
  Sender: FDA-Public Use
  Company Number: US-009507513-1504USA023235

PATIENT
  Age: 20 Year
  Sex: Female

DRUGS (1)
  1. GRASTEK [Suspect]
     Active Substance: PHLEUM PRATENSE POLLEN
     Dosage: 1 DF, QD (STRENGTH: 2800 BAU)
     Route: 060
     Dates: start: 201504, end: 2015

REACTIONS (4)
  - Hypersensitivity [Recovering/Resolving]
  - Swelling face [Recovered/Resolved]
  - Inappropriate schedule of drug administration [Unknown]
  - Throat irritation [Recovered/Resolved]

NARRATIVE: CASE EVENT DATE: 2015
